FAERS Safety Report 11218809 (Version 3)
Quarter: 2015Q3

REPORT INFORMATION
  Report Type: Spontaneous
  Country: JP (occurrence: JP)
  Receive Date: 20150625
  Receipt Date: 20150724
  Transmission Date: 20151125
  Serious: Yes (Hospitalization, Other)
  Sender: FDA-Public Use
  Company Number: JP-GLAXOSMITHKLINE-JP2015JPN086770

PATIENT
  Age: 83 Year
  Sex: Female
  Weight: 53 kg

DRUGS (9)
  1. LISINOPRIL HYDRATE [Concomitant]
     Dosage: 10 MG, 1D
  2. ETHYL ICOSAPENTATE [Concomitant]
     Active Substance: ETHYL ICOSAPENTATE
     Dosage: 3 DF, 1D
  3. BIOFERMIN [Concomitant]
     Active Substance: BACILLUS SUBTILIS\LACTOBACILLUS ACIDOPHILUS\STREPTOCOCCUS FAECAIS
  4. OPALMON [Concomitant]
     Active Substance: LIMAPROST
     Dosage: 5 MG, 1D
  5. DILTIAZEM HYDROCHLORIDE R [Concomitant]
     Active Substance: DILTIAZEM HYDROCHLORIDE
     Dosage: 100 MG, 1D
  6. RECALBON [Concomitant]
     Active Substance: MINODRONIC ACID
     Dosage: 50 MG, 1D
  7. VERAPAMIL HYDROCHLORIDE. [Concomitant]
     Active Substance: VERAPAMIL HYDROCHLORIDE
     Dosage: 40 MG, 1D
  8. LAC-B [Concomitant]
     Active Substance: BIFIDOBACTERIUM SPP.
     Dosage: 3 DF, 1D
  9. VALTREX [Suspect]
     Active Substance: VALACYCLOVIR HYDROCHLORIDE
     Indication: HERPES ZOSTER
     Dosage: 1000 MG, TID
     Route: 048
     Dates: start: 20150615, end: 20150617

REACTIONS (9)
  - Vomiting [Recovered/Resolved]
  - Nightmare [Recovered/Resolved]
  - Nausea [Recovering/Resolving]
  - Blood urea increased [Recovering/Resolving]
  - Renal disorder [Recovered/Resolved]
  - Renal failure [Recovering/Resolving]
  - Hypophagia [Recovering/Resolving]
  - Oliguria [Recovered/Resolved]
  - Blood creatinine increased [Recovering/Resolving]

NARRATIVE: CASE EVENT DATE: 20150616
